FAERS Safety Report 12217625 (Version 1)
Quarter: 2016Q1

REPORT INFORMATION
  Report Type: Spontaneous
  Country: US (occurrence: None)
  Receive Date: 20160328
  Receipt Date: 20160328
  Transmission Date: 20160526
  Serious: Yes (Other)
  Sender: FDA-Public Use
  Company Number: None

PATIENT
  Age: 76 Year
  Sex: Female
  Weight: 67.13 kg

DRUGS (9)
  1. LIVALO [Suspect]
     Active Substance: PITAVASTATIN CALCIUM
     Indication: BLOOD CHOLESTEROL INCREASED
     Dosage: 1 TABLET(S) EVERY OTHER DAY TAKEN BY MOUTH
     Route: 048
  2. LORATIDINE [Concomitant]
     Active Substance: LORATADINE
  3. ASPIRIN. [Concomitant]
     Active Substance: ASPIRIN
  4. ARMOUR [Concomitant]
  5. L-ARGININE [Concomitant]
     Active Substance: ARGININE
  6. VITAMIN C [Concomitant]
     Active Substance: ASCORBIC ACID
  7. METOPROLOL. [Concomitant]
     Active Substance: METOPROLOL
  8. COQ10 [Concomitant]
     Active Substance: UBIDECARENONE
  9. VITAMIN B-COMPLEX [Concomitant]
     Active Substance: DEXPANTHENOL\NIACINAMIDE\PYRIDOXINE HYDROCHLORIDE\RIBOFLAVIN 5^-PHOSPHATE SODIUM\THIAMINE HYDROCHLORIDE

REACTIONS (7)
  - Peripheral coldness [None]
  - Arthralgia [None]
  - Muscle spasms [None]
  - Movement disorder [None]
  - Joint swelling [None]
  - Pain in extremity [None]
  - Pruritus [None]

NARRATIVE: CASE EVENT DATE: 20160201
